FAERS Safety Report 7402532-0 (Version None)
Quarter: 2011Q1

REPORT INFORMATION
  Report Type: 
  Country: None (occurrence: None)
  Receive Date: 20110330
  Receipt Date: 20110330
  Transmission Date: 20110831
  Serious: Yes (Hospitalization)
  Sender: FDA-Public Use
  Company Number: 029387

PATIENT
  Sex: Male

DRUGS (11)
  1. LORNOXICAM [Concomitant]
  2. OMEPRAZOLE [Concomitant]
  3. ETIZOLAM [Concomitant]
  4. PREDONINE /00016201/ (PREDONINE) [Suspect]
     Indication: RHEUMATOID ARTHRITIS
     Dosage: (5 MG ORAL), (10 MG ORAL), (15 MG), (TAPERED DOWN TO 5 MG)
     Route: 048
     Dates: start: 20110301, end: 20110301
  5. PREDONINE /00016201/ (PREDONINE) [Suspect]
     Indication: RHEUMATOID ARTHRITIS
     Dosage: (5 MG ORAL), (10 MG ORAL), (15 MG), (TAPERED DOWN TO 5 MG)
     Route: 048
     Dates: start: 20110301
  6. PREDONINE /00016201/ (PREDONINE) [Suspect]
     Indication: RHEUMATOID ARTHRITIS
     Dosage: (5 MG ORAL), (10 MG ORAL), (15 MG), (TAPERED DOWN TO 5 MG)
     Route: 048
     Dates: start: 20100209, end: 20110302
  7. PREDONINE /00016201/ (PREDONINE) [Suspect]
     Indication: RHEUMATOID ARTHRITIS
     Dosage: (5 MG ORAL), (10 MG ORAL), (15 MG), (TAPERED DOWN TO 5 MG)
     Route: 048
     Dates: start: 20110303
  8. FELBINAC [Concomitant]
  9. CERTOLIZUMAB PEGOL (CERTOLIZUMAB PEGOL) [Suspect]
     Indication: RHEUMATOID ARTHRITIS
     Dosage: (200 MG 1X/2 WEEKS SUBCUTANEOUS)
     Route: 058
     Dates: start: 20100531
  10. KETOPROFEN [Concomitant]
  11. BUTENAFINE HYDROCHLORIDE [Concomitant]

REACTIONS (4)
  - ARTHRALGIA [None]
  - GAIT DISTURBANCE [None]
  - PNEUMONIA [None]
  - MALAISE [None]
